FAERS Safety Report 18055104 (Version 1)
Quarter: 2020Q3

REPORT INFORMATION
  Report Type: Spontaneous
  Country: US (occurrence: US)
  Receive Date: 20200721
  Receipt Date: 20200721
  Transmission Date: 20201103
  Serious: Yes (Hospitalization, Other)
  Sender: FDA-Public Use
  Company Number: None

PATIENT
  Age: 81 Year
  Sex: Male
  Weight: 74 kg

DRUGS (1)
  1. APIXABAN (APIXABAN 5MG TAB) [Suspect]
     Active Substance: APIXABAN
     Indication: ATRIAL FIBRILLATION
     Route: 048
     Dates: start: 20171017, end: 20180605

REACTIONS (6)
  - Confusional state [None]
  - Cerebral haematoma [None]
  - Hemiparesis [None]
  - Hemianaesthesia [None]
  - Fall [None]
  - Dysarthria [None]

NARRATIVE: CASE EVENT DATE: 20180605
